FAERS Safety Report 9236255 (Version 2)
Quarter: 2013Q2

REPORT INFORMATION
  Report Type: Spontaneous
  Country: FR (occurrence: FR)
  Receive Date: 20130417
  Receipt Date: 20130513
  Transmission Date: 20140414
  Serious: Yes (Hospitalization)
  Sender: FDA-Public Use
  Company Number: FR-PFIZER INC-2013115502

PATIENT
  Age: 6 Year
  Sex: Female

DRUGS (3)
  1. ADVIL [Suspect]
     Indication: PYREXIA
     Dosage: 3 DF, UNK
     Route: 048
     Dates: start: 20121014, end: 20121015
  2. ADVIL [Suspect]
     Indication: ABDOMINAL PAIN
  3. AMOXICILLIN [Concomitant]
     Indication: TONSILLITIS
     Dosage: UNK
     Dates: start: 20120925, end: 20120930

REACTIONS (1)
  - Tubulointerstitial nephritis [Recovered/Resolved]
